FAERS Safety Report 8625508-4 (Version None)
Quarter: 2012Q3

REPORT INFORMATION
  Report Type: 
  Country: None (occurrence: None)
  Receive Date: 20120827
  Receipt Date: 20120813
  Transmission Date: 20120928
  Serious: Yes (Hospitalization)
  Sender: FDA-Public Use
  Company Number: TR-MYLANLABS-2012S1016751

PATIENT
  Age: 33 Year
  Sex: Male

DRUGS (4)
  1. MORPHINE [Suspect]
     Indication: KOUNIS SYNDROME
     Dosage: SINGLE DOSE
     Route: 042
  2. CEFAZOLIN [Suspect]
     Indication: UPPER RESPIRATORY TRACT INFECTION
     Route: 065
  3. AMOXICILLIN AND CLAVULANATE POTASSIUM [Suspect]
     Indication: UPPER RESPIRATORY TRACT INFECTION
     Route: 048
  4. METHIMAZOLE [Concomitant]
     Route: 042

REACTIONS (5)
  - DISEASE RECURRENCE [None]
  - RASH ERYTHEMATOUS [None]
  - KOUNIS SYNDROME [None]
  - CONDITION AGGRAVATED [None]
  - HYPERSENSITIVITY [None]
